FAERS Safety Report 17786429 (Version 1)
Quarter: 2020Q2

REPORT INFORMATION
  Report Type: Report from Study
  Country: US (occurrence: US)
  Receive Date: 20200514
  Receipt Date: 20200514
  Transmission Date: 20200714
  Serious: Yes (Death, Life-Threatening)
  Sender: FDA-Public Use
  Company Number: US-SA-2020SA115022

PATIENT
  Age: 49 Year
  Sex: Male

DRUGS (9)
  1. HYDROXYCHLOROQUINE [Concomitant]
     Active Substance: HYDROXYCHLOROQUINE
     Indication: CORONAVIRUS INFECTION
     Dosage: 400 MG, BID
     Dates: start: 20200423, end: 20200423
  2. METHYLPREDNISOLONE SODIUM SUCCINATE. [Concomitant]
     Active Substance: METHYLPREDNISOLONE SODIUM SUCCINATE
     Dosage: 68 MG, CONTINUOUS INFUSION
     Route: 042
     Dates: start: 20200423, end: 20200428
  3. ACETAMINOPHEN. [Concomitant]
     Active Substance: ACETAMINOPHEN
     Indication: PYREXIA
     Dosage: 650 MG, AS NECESSARY
     Dates: start: 20200423, end: 20200429
  4. SARILUMAB [Suspect]
     Active Substance: SARILUMAB
     Dosage: REGN88 OR PLACEBO 200 MG OR 400 MG, SINGLE OR MULTIPLE
     Route: 042
     Dates: start: 20200424, end: 20200424
  5. METHYLPREDNISOLONE SODIUM SUCCINATE. [Concomitant]
     Active Substance: METHYLPREDNISOLONE SODIUM SUCCINATE
     Indication: ACUTE RESPIRATORY FAILURE
     Dosage: 68.125 MG, QD
     Route: 042
     Dates: start: 20200423, end: 20200423
  6. CEFTRIAXONE. [Concomitant]
     Active Substance: CEFTRIAXONE
     Indication: CORONAVIRUS INFECTION
     Dosage: 2 G, QD
     Route: 042
     Dates: start: 20200423, end: 20200424
  7. DOXYCYCLINE. [Concomitant]
     Active Substance: DOXYCYCLINE
     Indication: CORONAVIRUS INFECTION
     Dosage: 100 MG, BID
     Dates: start: 20200423, end: 20200424
  8. SARILUMAB [Suspect]
     Active Substance: SARILUMAB
     Indication: CORONAVIRUS INFECTION
     Dosage: REGN88 OR PLACEBO 200 MG OR 400 MG, SINGLE OR MULTIPLE
     Route: 042
     Dates: start: 20200423, end: 20200423
  9. HYDROXYCHLOROQUINE [Concomitant]
     Active Substance: HYDROXYCHLOROQUINE
     Dosage: 200 MG BID
     Dates: start: 20200424, end: 20200427

REACTIONS (2)
  - Acute respiratory failure [Fatal]
  - Sepsis [Not Recovered/Not Resolved]

NARRATIVE: CASE EVENT DATE: 20200429
